FAERS Safety Report 24130017 (Version 1)
Quarter: 2024Q3

REPORT INFORMATION
  Report Type: Report from Study
  Country: CA (occurrence: CA)
  Receive Date: 20240724
  Receipt Date: 20240724
  Transmission Date: 20241017
  Serious: Yes (Other)
  Sender: JOHNSON AND JOHNSON
  Company Number: CA-JNJFOC-20240181052

PATIENT
  Age: 18 Year
  Sex: Female

DRUGS (7)
  1. REMICADE [Suspect]
     Active Substance: INFLIXIMAB
     Indication: Colitis ulcerative
     Dosage: EXP DATE JUN-2026
     Route: 041
     Dates: start: 20220721
  2. REMICADE [Suspect]
     Active Substance: INFLIXIMAB
     Dosage: EXP DATE- NOV-2025
     Route: 041
  3. ERGOCALCIFEROL [Concomitant]
     Active Substance: ERGOCALCIFEROL
  4. PREDNISONE [Concomitant]
     Active Substance: PREDNISONE
  5. AMINOSALICYLIC ACID [Concomitant]
     Active Substance: AMINOSALICYLIC ACID
  6. FERAMAX [Concomitant]
     Active Substance: IRON\POLYSACCHARIDES
  7. IRON [Concomitant]
     Active Substance: IRON

REACTIONS (9)
  - Rectal haemorrhage [Not Recovered/Not Resolved]
  - Haematochezia [Recovered/Resolved]
  - Poor venous access [Unknown]
  - Infusion site pain [Unknown]
  - Amenorrhoea [Recovered/Resolved]
  - Ingrown hair [Recovered/Resolved]
  - Vaginal haemorrhage [Recovered/Resolved]
  - Varicella [Recovering/Resolving]
  - Inappropriate schedule of product administration [Unknown]

NARRATIVE: CASE EVENT DATE: 20240101
